FAERS Safety Report 5352785-8 (Version None)
Quarter: 2007Q2

REPORT INFORMATION
  Report Type: 
  Country: None (occurrence: None)
  Receive Date: 20070611
  Receipt Date: 20070607
  Transmission Date: 20071010
  Serious: Yes (Other)
  Sender: FDA-Public Use
  Company Number: JP-ASTRAZENECA-2007SE02710

PATIENT
  Age: 21128 Day
  Sex: Male

DRUGS (7)
  1. BLOPRESS TABLETS 8 [Suspect]
     Indication: HYPERTENSION
     Route: 048
     Dates: start: 20070322, end: 20070423
  2. MUCOSTA [Concomitant]
     Indication: GASTRITIS
     Route: 048
  3. PARIET [Concomitant]
     Indication: DUODENAL ULCER
     Route: 048
  4. TICLOPIDINE HCL [Concomitant]
     Indication: CEREBRAL INFARCTION
     Route: 048
  5. AMLODIN OD [Concomitant]
     Indication: HYPERTENSION
     Route: 048
     Dates: start: 20070119
  6. MYSLEE [Concomitant]
     Indication: INSOMNIA
     Route: 048
  7. SERMION [Concomitant]
     Indication: CEREBRAL INFARCTION
     Route: 048

REACTIONS (2)
  - RENAL FAILURE ACUTE [None]
  - RHABDOMYOLYSIS [None]
